FAERS Safety Report 10713647 (Version 1)
Quarter: 2015Q1

REPORT INFORMATION
  Report Type: Report from Study
  Country: US (occurrence: US)
  Receive Date: 20150115
  Receipt Date: 20150115
  Transmission Date: 20150721
  Serious: Yes (Other)
  Sender: FDA-Public Use
  Company Number: US-SA-2013SA108070

PATIENT
  Age: 67 Year
  Sex: Female

DRUGS (1)
  1. AUBAGIO [Suspect]
     Active Substance: TERIFLUNOMIDE
     Indication: MULTIPLE SCLEROSIS
     Route: 048
     Dates: start: 20131001

REACTIONS (9)
  - Hemiparesis [Unknown]
  - Paraesthesia [Unknown]
  - Condition aggravated [Unknown]
  - Fatigue [Unknown]
  - Impaired work ability [Unknown]
  - Constipation [Unknown]
  - Nausea [Recovered/Resolved]
  - Alopecia [Unknown]
  - Dizziness [Recovered/Resolved]

NARRATIVE: CASE EVENT DATE: 2014
